FAERS Safety Report 7694158-9 (Version None)
Quarter: 2011Q3

REPORT INFORMATION
  Report Type: 
  Country: None (occurrence: None)
  Receive Date: 20110819
  Receipt Date: 20110810
  Transmission Date: 20111222
  Serious: Yes (Hospitalization)
  Sender: FDA-Public Use
  Company Number: DE-MILLENNIUM PHARMACEUTICALS, INC.-2011-03578

PATIENT

DRUGS (6)
  1. CIPRALEX                           /01588501/ [Concomitant]
     Indication: DEPRESSION
     Dosage: 100 MG, UNK
     Route: 065
     Dates: start: 20110101, end: 20110809
  2. PANTOPRAZOLE [Concomitant]
     Indication: PROPHYLAXIS
     Dosage: 20 MG, UNK
     Route: 065
     Dates: start: 20110101, end: 20110809
  3. COTRIM FORTE EU RHO [Concomitant]
     Indication: ANTIBIOTIC THERAPY
     Dosage: 10 MG, UNK
     Route: 065
     Dates: start: 20110730, end: 20110807
  4. ACYCLOVIR [Concomitant]
     Indication: ANTIVIRAL PROPHYLAXIS
     Dosage: 800 MG, UNK
     Route: 065
     Dates: start: 20110727, end: 20110809
  5. VELCADE [Suspect]
     Indication: MULTIPLE MYELOMA
     Dosage: UNK
     Route: 042
     Dates: start: 20110726, end: 20110805
  6. PALLADON                           /00080902/ [Concomitant]
     Indication: PAIN
     Dosage: 16 MG, UNK
     Route: 065
     Dates: start: 20110101, end: 20110809

REACTIONS (1)
  - CARDIOVASCULAR INSUFFICIENCY [None]
